FAERS Safety Report 6083149-X (Version None)
Quarter: 2009Q1

REPORT INFORMATION
  Report Type: 
  Country: None (occurrence: None)
  Receive Date: 20090213
  Receipt Date: 20090213
  Transmission Date: 20090719
  Serious: No
  Sender: FDA-Public Use
  Company Number: None

PATIENT
  Sex: Female
  Weight: 64.8644 kg

DRUGS (1)
  1. GENGRAF [Suspect]
     Indication: KIDNEY TRANSPLANT REJECTION
     Dosage: 50 MG TWICE DAILY BY MOUTH
     Route: 048
     Dates: start: 20080501, end: 20080710

REACTIONS (3)
  - DRUG LEVEL CHANGED [None]
  - DRUG LEVEL DECREASED [None]
  - PRODUCT QUALITY ISSUE [None]
